FAERS Safety Report 8636829 (Version 3)
Quarter: 2012Q4

REPORT INFORMATION
  Report Type: 
  Country: US (occurrence: US)
  Receive Date: 20120626
  Receipt Date: 20121207
  Transmission Date: 20130627
  Serious: Yes (Life-Threatening, Hospitalization)
  Sender: FDA-Public Use
  Company Number: US-BAXTER-2012BAX008508

PATIENT
  Age: 50 Year
  Sex: Female
  Weight: 104.42 kg

DRUGS (26)
  1. GAMMAGARD LIQUID [Suspect]
     Indication: COMMON VARIABLE IMMUNODEFICIENCY
     Route: 042
     Dates: start: 200609
  2. GAMMAGARD LIQUID [Suspect]
     Indication: HYPOGAMMAGLOBULINEMIA
     Route: 042
     Dates: start: 20120429, end: 20120429
  3. ALBUTEROL [Concomitant]
     Indication: DRUG USE FOR UNKNOWN INDICATION
     Dosage: 2 PUFFS
  4. ABILIFY [Concomitant]
     Indication: DRUG USE FOR UNKNOWN INDICATION
  5. KLONOPIN [Concomitant]
     Indication: DRUG USE FOR UNKNOWN INDICATION
  6. CLOTRIMAZOLE [Concomitant]
     Indication: DRUG USE FOR UNKNOWN INDICATION
     Route: 061
  7. COUMADIN [Concomitant]
     Indication: DRUG USE FOR UNKNOWN INDICATION
  8. COUMADIN [Concomitant]
  9. COUMADIN [Concomitant]
  10. DIPHENHYDRAMINE [Concomitant]
     Indication: DRUG USE FOR UNKNOWN INDICATION
  11. EPINEPHRINE [Concomitant]
     Indication: DRUG USE FOR UNKNOWN INDICATION
  12. FLUTICASONE [Concomitant]
     Indication: DRUG USE FOR UNKNOWN INDICATION
     Dosage: 2 sprays in each nostril
     Route: 045
  13. FUROSEMIDE [Concomitant]
     Indication: DRUG USE FOR UNKNOWN INDICATION
  14. GABAPENTIN [Concomitant]
     Indication: DRUG USE FOR UNKNOWN INDICATION
     Dosage: 2 tablets
  15. LORATADINE [Concomitant]
     Indication: DRUG USE FOR UNKNOWN INDICATION
  16. COZAAR [Concomitant]
     Indication: DRUG USE FOR UNKNOWN INDICATION
  17. LOVASTATIN [Concomitant]
     Indication: DRUG USE FOR UNKNOWN INDICATION
  18. SINGULAIR [Concomitant]
     Indication: DRUG USE FOR UNKNOWN INDICATION
  19. OMEPRAZOLE [Concomitant]
     Indication: DRUG USE FOR UNKNOWN INDICATION
  20. PERCOCET [Concomitant]
     Indication: DRUG USE FOR UNKNOWN INDICATION
     Dosage: 5/325mg; 1-2 tablets
  21. POTASSIUM CHLORIDE [Concomitant]
     Indication: DRUG USE FOR UNKNOWN INDICATION
  22. LYRICA [Concomitant]
     Indication: DRUG USE FOR UNKNOWN INDICATION
  23. SUDAFED [Concomitant]
     Indication: DRUG USE FOR UNKNOWN INDICATION
     Dosage: 1-2 tablets
  24. IMITREX [Concomitant]
     Indication: MIGRAINE
  25. TRAMADOL [Concomitant]
     Indication: DRUG USE FOR UNKNOWN INDICATION
  26. AMBIEN [Concomitant]
     Indication: DRUG USE FOR UNKNOWN INDICATION

REACTIONS (10)
  - Urosepsis [Recovered/Resolved]
  - Pyelonephritis [Recovered/Resolved]
  - Chills [Recovered/Resolved]
  - Pyrexia [Recovered/Resolved]
  - Dehydration [Recovered/Resolved]
  - Bronchitis [Recovered/Resolved]
  - Bronchospasm [Recovered/Resolved]
  - Hypoxia [Recovered/Resolved]
  - Nausea [Recovered/Resolved]
  - Flank pain [Recovered/Resolved]
